FAERS Safety Report 11863639 (Version 1)
Quarter: 2015Q4

REPORT INFORMATION
  Report Type: Spontaneous
  Country: US (occurrence: US)
  Receive Date: 20151223
  Receipt Date: 20151223
  Transmission Date: 20160305
  Serious: Yes (Hospitalization, Other)
  Sender: FDA-Public Use
  Company Number: US-AMGEN-USASP2015135272

PATIENT
  Age: 65 Year
  Sex: Female

DRUGS (1)
  1. PROLIA [Suspect]
     Active Substance: DENOSUMAB
     Indication: PRODUCT USED FOR UNKNOWN INDICATION
     Dosage: UNK
     Route: 065

REACTIONS (10)
  - Urinary tract infection bacterial [Unknown]
  - Neuralgia [Unknown]
  - Arthropathy [Unknown]
  - Gastric bypass [Unknown]
  - Knee operation [Unknown]
  - Bone disorder [Unknown]
  - Malabsorption [Unknown]
  - Pathogen resistance [Not Recovered/Not Resolved]
  - Muscle disorder [Unknown]
  - Nerve compression [Unknown]

NARRATIVE: CASE EVENT DATE: 201412
